FAERS Safety Report 23872311 (Version 2)
Quarter: 2025Q1

REPORT INFORMATION
  Report Type: Report from Study
  Country: US (occurrence: US)
  Receive Date: 20240520
  Receipt Date: 20250212
  Transmission Date: 20250408
  Serious: Yes (Other)
  Sender: AUROBINDO
  Company Number: US-AUROBINDO-AUR-APL-2024-022838

PATIENT
  Age: 58 Year
  Sex: Female

DRUGS (5)
  1. HYDROXYCHLOROQUINE [Suspect]
     Active Substance: HYDROXYCHLOROQUINE
     Indication: Systemic lupus erythematosus
     Route: 065
  2. BRINZOLAMIDE [Concomitant]
     Active Substance: BRINZOLAMIDE
     Indication: Cystoid macular oedema
     Dosage: CARBONIC ANHYDRASE INHIBITOR
     Route: 061
  3. PREDNISOLONE ACETATE [Concomitant]
     Active Substance: PREDNISOLONE ACETATE
     Indication: Cystoid macular oedema
     Dosage: 1 %, 3 TIMES A DAY
     Route: 061
  4. ACETAZOLAMIDE [Concomitant]
     Active Substance: ACETAZOLAMIDE
     Indication: Cystoid macular oedema
     Dosage: 250 MILLIGRAM, TWO TIMES A DAY
     Route: 048
  5. DEXAMETHASONE [Concomitant]
     Active Substance: DEXAMETHASONE
     Indication: Cystoid macular oedema

REACTIONS (4)
  - Retinal toxicity [Unknown]
  - Cystoid macular oedema [Recovered/Resolved]
  - Maculopathy [Unknown]
  - Toxicity to various agents [Unknown]
